FAERS Safety Report 5231756-6 (Version None)
Quarter: 2007Q1

REPORT INFORMATION
  Report Type: 
  Country: None (occurrence: None)
  Receive Date: 20070206
  Receipt Date: 20070205
  Transmission Date: 20070707
  Serious: Yes (Hospitalization)
  Sender: FDA-Public Use
  Company Number: US-BOEHRINGER INGELHEIM PHARMACEUTICALS, INC.-2007-DE-00676GD

PATIENT
  Age: 74 Year
  Sex: Male

DRUGS (2)
  1. CLONIDINE [Suspect]
     Indication: HYPERTENSIVE CRISIS
     Route: 048
  2. IBUPROFEN [Suspect]
     Indication: HEADACHE
     Dosage: 2 - 3 TABLETS
     Route: 048

REACTIONS (3)
  - DIZZINESS [None]
  - HYPERTENSION [None]
  - HYPOTENSION [None]
